FAERS Safety Report 5076365-7 (Version None)
Quarter: 2006Q3

REPORT INFORMATION
  Report Type: 
  Country: None (occurrence: None)
  Receive Date: 20060807
  Receipt Date: 20060720
  Transmission Date: 20061208
  Serious: Yes (Other)
  Sender: FDA-Public Use
  Company Number: 2006BH012091

PATIENT
  Sex: Female

DRUGS (1)
  1. SUPRANE [Suspect]
     Dosage: INH
     Route: 055

REACTIONS (1)
  - CHRONIC HEPATITIS [None]
